FAERS Safety Report 8595939-X (Version None)
Quarter: 2012Q3

REPORT INFORMATION
  Report Type: 
  Country: None (occurrence: None)
  Receive Date: 20120815
  Receipt Date: 19880406
  Transmission Date: 20120928
  Serious: Yes (Hospitalization)
  Sender: FDA-Public Use
  Company Number: US-ROCHE-1099874

PATIENT
  Age: 45 Year
  Sex: Male

DRUGS (5)
  1. NITROGLYCERIN [Concomitant]
  2. LIDOCAINE [Concomitant]
  3. NITROGLYCERIN [Concomitant]
     Route: 060
  4. ACTIVASE [Suspect]
     Indication: ACUTE MYOCARDIAL INFARCTION
     Dosage: 10 MG BOLUS WITH 50 MG OVER NEXT 1 HOUR AND WITH PLAN TO GIVE 20 MG PER HOUR OVER NEXT 2 HOUR
     Route: 040
  5. HEPARIN [Concomitant]
     Route: 065

REACTIONS (2)
  - CHEST DISCOMFORT [None]
  - ELECTROCARDIOGRAM ST SEGMENT ELEVATION [None]
